FAERS Safety Report 10652686 (Version 3)
Quarter: 2015Q1

REPORT INFORMATION
  Report Type: Report from Study
  Country: FR (occurrence: FR)
  Receive Date: 20141215
  Receipt Date: 20150311
  Transmission Date: 20150720
  Serious: Yes (Other)
  Sender: FDA-Public Use
  Company Number: FR-CELGENE-FRA-2014120323

PATIENT
  Age: 59 Year
  Sex: Male

DRUGS (8)
  1. FOLINIC ACID [Suspect]
     Active Substance: LEUCOVORIN
     Indication: PANCREATIC CARCINOMA METASTATIC
     Route: 065
     Dates: start: 20140129
  2. 5-FLUOROURACILE [Suspect]
     Active Substance: FLUOROURACIL
     Route: 065
     Dates: start: 20141208
  3. 5-FLUOROURACILE [Suspect]
     Active Substance: FLUOROURACIL
     Route: 065
     Dates: start: 20140129
  4. ABRAXANE [Suspect]
     Active Substance: PACLITAXEL
     Indication: PANCREATIC CARCINOMA METASTATIC
     Route: 041
     Dates: start: 20140129
  5. 5-FLUOROURACILE [Suspect]
     Active Substance: FLUOROURACIL
     Indication: PANCREATIC CARCINOMA METASTATIC
     Route: 065
     Dates: start: 20140129
  6. ABRAXANE [Suspect]
     Active Substance: PACLITAXEL
     Route: 041
     Dates: start: 20141208
  7. 5-FLUOROURACILE [Suspect]
     Active Substance: FLUOROURACIL
     Route: 065
     Dates: start: 20141208
  8. FOLINIC ACID [Suspect]
     Active Substance: LEUCOVORIN
     Route: 065
     Dates: start: 20141208

REACTIONS (1)
  - Hepatitis acute [Recovered/Resolved]

NARRATIVE: CASE EVENT DATE: 20141114
